FAERS Safety Report 16463617 (Version 1)
Quarter: 2019Q2

REPORT INFORMATION
  Report Type: Spontaneous
  Country: US (occurrence: US)
  Receive Date: 20190621
  Receipt Date: 20190621
  Transmission Date: 20190711
  Serious: No
  Sender: FDA-Public Use
  Company Number: US-ADAMAS PHARMA, LLC-2019ADA01058

PATIENT
  Age: 79 Year
  Sex: Male
  Weight: 63.49 kg

DRUGS (9)
  1. CARBIDOPA/LEVODOPA [Concomitant]
     Active Substance: CARBIDOPA\LEVODOPA
     Dosage: 137 MG, 1X/DAY
     Route: 048
     Dates: start: 20180118, end: 20180124
  2. CARBIDOPA/LEVODOPA [Concomitant]
     Active Substance: CARBIDOPA\LEVODOPA
     Dosage: 247 UNK
     Route: 048
     Dates: start: 20180124
  3. CARBIDOPA/LEVODOPA [Concomitant]
     Active Substance: CARBIDOPA\LEVODOPA
     Indication: DYSKINESIA
     Dosage: UNK
  4. CLONAZEPAM ODT [Concomitant]
     Active Substance: CLONAZEPAM
  5. CARBIDOPA/LEVODOPA ER [Concomitant]
     Active Substance: CARBIDOPA\LEVODOPA
     Indication: DYSKINESIA
  6. GOCOVRI [Suspect]
     Active Substance: AMANTADINE
     Dosage: 137 MG, 1X/DAY AT BEDTIME
     Route: 048
     Dates: start: 201806
  7. GOCOVRI [Suspect]
     Active Substance: AMANTADINE
     Indication: DYSKINESIA
     Dosage: 274 MG, 1X/DAY AT BEDTIME
     Route: 048
     Dates: start: 20180615, end: 201806
  8. LISINOPRIL. [Concomitant]
     Active Substance: LISINOPRIL
  9. SIMVASTATIN. [Concomitant]
     Active Substance: SIMVASTATIN

REACTIONS (2)
  - Gait disturbance [Recovering/Resolving]
  - Drug ineffective [Not Recovered/Not Resolved]

NARRATIVE: CASE EVENT DATE: 201806
